FAERS Safety Report 23363499 (Version 1)
Quarter: 2024Q1

REPORT INFORMATION
  Report Type: Spontaneous
  Country: US (occurrence: US)
  Receive Date: 20240103
  Receipt Date: 20240103
  Transmission Date: 20240409
  Serious: No
  Sender: FDA-Public Use
  Company Number: US-VISTAPHARM-2023-US-039577

PATIENT
  Age: 61 Year
  Sex: Female
  Weight: 70.31 kg

DRUGS (1)
  1. SUCRALFATE ORAL SUSPENSION [Suspect]
     Active Substance: SUCRALFATE
     Indication: Gastrointestinal disorder
     Dosage: 15ML QID PRN
     Route: 048
     Dates: start: 20231101, end: 20231115

REACTIONS (4)
  - Diarrhoea [Not Recovered/Not Resolved]
  - Vomiting [Recovered/Resolved]
  - Nausea [Recovered/Resolved]
  - Drug ineffective [Recovered/Resolved]

NARRATIVE: CASE EVENT DATE: 20231101
